FAERS Safety Report 5658933-4 (Version None)
Quarter: 2008Q1

REPORT INFORMATION
  Report Type: 
  Country: None (occurrence: None)
  Receive Date: 20080310
  Receipt Date: 20070709
  Transmission Date: 20080703
  Serious: No
  Sender: FDA-Public Use
  Company Number: US-BAYER-200711478BCC

PATIENT
  Age: 58 Year
  Sex: Female
  Weight: 85 kg

DRUGS (10)
  1. ALEVE [Suspect]
     Indication: FIBROMYALGIA
     Route: 048
  2. ALEVE [Suspect]
     Dosage: TOTAL DAILY DOSE: 440 MG  UNIT DOSE: 220 MG
     Route: 048
     Dates: start: 20070401
  3. ALEVE [Suspect]
     Indication: FIBROMYALGIA
     Dosage: TOTAL DAILY DOSE: 440 MG  UNIT DOSE: 220 MG
     Route: 048
     Dates: start: 20070401
  4. WATER PILL-UNKNOWN NAME [Concomitant]
  5. DIABETES MEDS [Concomitant]
  6. INSULIN [Concomitant]
  7. BYETTA [Concomitant]
  8. PAMELOR [Concomitant]
  9. LASIX [Concomitant]
  10. ZEGERID [Concomitant]

REACTIONS (6)
  - ABDOMINAL DISTENSION [None]
  - HYPERSENSITIVITY [None]
  - OEDEMA PERIPHERAL [None]
  - SWELLING [None]
  - SWELLING FACE [None]
  - WEIGHT INCREASED [None]
